FAERS Safety Report 11666294 (Version 1)
Quarter: 2015Q4

REPORT INFORMATION
  Report Type: Spontaneous
  Country: US (occurrence: US)
  Receive Date: 20151027
  Receipt Date: 20151027
  Transmission Date: 20160304
  Serious: No
  Sender: FDA-Public Use
  Company Number: US-ELI_LILLY_AND_COMPANY-US200912004666

PATIENT
  Age: 69 Year
  Sex: Female
  Weight: 59.41 kg

DRUGS (7)
  1. FORTEO [Suspect]
     Active Substance: TERIPARATIDE
     Dosage: 20 UG, DAILY (1/D)
     Dates: start: 20091201, end: 20091211
  2. CITRACAL [Concomitant]
     Active Substance: CALCIUM CITRATE
  3. FORTEO [Suspect]
     Active Substance: TERIPARATIDE
     Indication: OSTEOPOROSIS
     Dosage: 20 UG, DAILY (1/D)
     Dates: start: 20090801, end: 200911
  4. CENTRUM /00554501/ [Concomitant]
     Active Substance: VITAMINS
  5. VITAMIN D [Concomitant]
     Active Substance: CHOLECALCIFEROL
  6. XANAX [Concomitant]
     Active Substance: ALPRAZOLAM
     Dosage: 1 MG, EACH EVENING
  7. CALCIUM [Concomitant]
     Active Substance: CALCIUM

REACTIONS (25)
  - Back pain [Recovering/Resolving]
  - Fibromyalgia [Recovering/Resolving]
  - Oropharyngeal pain [Recovering/Resolving]
  - Mental fatigue [Recovering/Resolving]
  - Neck pain [Recovering/Resolving]
  - Feeling abnormal [Recovering/Resolving]
  - Arthralgia [Recovering/Resolving]
  - Rhinitis [Recovering/Resolving]
  - Muscle rigidity [Recovered/Resolved]
  - Insomnia [Recovering/Resolving]
  - Pain [Recovering/Resolving]
  - Cough [Recovering/Resolving]
  - Chest pain [Recovering/Resolving]
  - Musculoskeletal pain [Recovering/Resolving]
  - Vomiting [Recovered/Resolved]
  - Headache [Recovering/Resolving]
  - Groin pain [Recovering/Resolving]
  - Bone pain [Recovering/Resolving]
  - Fatigue [Recovering/Resolving]
  - Vitamin D decreased [Recovering/Resolving]
  - Pain in extremity [Recovering/Resolving]
  - Middle insomnia [Recovering/Resolving]
  - Weight decreased [Recovering/Resolving]
  - Constipation [Recovering/Resolving]
  - Nausea [Recovering/Resolving]

NARRATIVE: CASE EVENT DATE: 2009
